FAERS Safety Report 14789357 (Version 2)
Quarter: 2018Q4

REPORT INFORMATION
  Report Type: Report from Study
  Country: DE (occurrence: DE)
  Receive Date: 20180423
  Receipt Date: 20181113
  Transmission Date: 20190204
  Serious: Yes (Death, Hospitalization)
  Sender: FDA-Public Use
  Company Number: DE-ACCORD-065932

PATIENT
  Age: 69 Year
  Sex: Female

DRUGS (9)
  1. METHOTREXATE. [Suspect]
     Active Substance: METHOTREXATE
     Indication: RHEUMATOID ARTHRITIS
     Dosage: DAILY DOSE: 7.5 MG MILLGRAM(S) EVERY WEEKS
     Route: 048
     Dates: start: 200809
  2. DEKRISTOL [Concomitant]
     Active Substance: CHOLECALCIFEROL
  3. PREDNISOLONE. [Concomitant]
     Active Substance: PREDNISOLONE
  4. LANSOPRAZOLE. [Concomitant]
     Active Substance: LANSOPRAZOLE
  5. PLAVIX [Concomitant]
     Active Substance: CLOPIDOGREL BISULFATE
     Dates: start: 201004
  6. FOLSAN [Concomitant]
     Active Substance: FOLIC ACID
     Route: 065
     Dates: start: 200809
  7. RASILEZ [Concomitant]
     Active Substance: ALISKIREN
     Dosage: STRENGTH: 150 MG - BP280
     Route: 065
  8. MABTHERA [Suspect]
     Active Substance: RITUXIMAB
     Indication: RHEUMATOID ARTHRITIS
     Dosage: LAST ADMINISTRATION PRIOR TO THE EVENT: 30-AUG-2010 DOSE: 4000 MG
     Route: 042
  9. LEVOTHYROXINE. [Concomitant]
     Active Substance: LEVOTHYROXINE

REACTIONS (9)
  - Rectocele [Recovered/Resolved]
  - Skin ulcer [Unknown]
  - Intestinal ischaemia [Not Recovered/Not Resolved]
  - Stent placement [Recovered/Resolved]
  - Respiratory failure [Fatal]
  - Vomiting [Not Recovered/Not Resolved]
  - Anal prolapse [Recovered/Resolved]
  - Aspiration [Fatal]
  - Hypoxia [Fatal]

NARRATIVE: CASE EVENT DATE: 201004
